FAERS Safety Report 25089741 (Version 1)
Quarter: 2025Q1

REPORT INFORMATION
  Report Type: Spontaneous
  Country: JP (occurrence: JP)
  Receive Date: 20250318
  Receipt Date: 20250318
  Transmission Date: 20250408
  Serious: Yes (Other)
  Sender: ANI
  Company Number: JP-ANIPHARMA-2025-JP-000058

PATIENT
  Age: 78 Year
  Sex: Male

DRUGS (1)
  1. CANDESARTAN CILEXETIL [Suspect]
     Active Substance: CANDESARTAN CILEXETIL
     Indication: Hypertension
     Route: 048

REACTIONS (6)
  - Prostatic operation [Unknown]
  - Nocturia [Unknown]
  - Pollakiuria [Recovered/Resolved]
  - Hypertonic bladder [Unknown]
  - Dysuria [Recovered/Resolved]
  - Hypertonic bladder [Unknown]

NARRATIVE: CASE EVENT DATE: 20240708
